FAERS Safety Report 10751396 (Version 3)
Quarter: 2015Q1

REPORT INFORMATION
  Report Type: Spontaneous
  Country: FR (occurrence: FR)
  Receive Date: 20150130
  Receipt Date: 20150225
  Transmission Date: 20150721
  Serious: Yes (Other)
  Sender: FDA-Public Use
  Company Number: FR-ABBVIE-15K-056-1339889-00

PATIENT
  Age: 33 Year
  Sex: Female
  Weight: 80 kg

DRUGS (1)
  1. HUMIRA [Suspect]
     Active Substance: ADALIMUMAB
     Indication: ANKYLOSING SPONDYLITIS
     Route: 058
     Dates: start: 201401, end: 201412

REACTIONS (7)
  - Gastrointestinal pain [Unknown]
  - Systemic lupus erythematosus [Unknown]
  - Cough [Unknown]
  - Abdominal distension [Unknown]
  - Ascites [Unknown]
  - Sepsis [Unknown]
  - Localised intraabdominal fluid collection [Unknown]

NARRATIVE: CASE EVENT DATE: 201409
